FAERS Safety Report 16208069 (Version 3)
Quarter: 2019Q2

REPORT INFORMATION
  Report Type: Spontaneous
  Country: JP (occurrence: JP)
  Receive Date: 20190417
  Receipt Date: 20190524
  Transmission Date: 20190711
  Serious: Yes (Other)
  Sender: FDA-Public Use
  Company Number: JP-TAKEDA-2019TUS023156

PATIENT
  Age: 60 Year
  Sex: Female

DRUGS (6)
  1. DEPAS [Concomitant]
     Indication: CERVICAL RADICULOPATHY
     Dosage: 1 MILLIGRAM, QD
     Route: 048
     Dates: start: 20180410
  2. GASLON [Concomitant]
     Active Substance: IRSOGLADINE MALEATE
     Indication: CERVICAL RADICULOPATHY
     Dosage: 1 MILLIGRAM, BID
     Route: 048
     Dates: start: 20180410
  3. CELECOX [Concomitant]
     Active Substance: CELECOXIB
     Indication: CERVICAL RADICULOPATHY
     Dosage: 50 MILLIGRAM, BID
     Route: 048
     Dates: start: 20180410
  4. LYRICA [Concomitant]
     Active Substance: PREGABALIN
     Indication: CERVICAL RADICULOPATHY
     Dosage: 75 MILLIGRAM, QD
     Route: 048
     Dates: start: 20180410
  5. LIVALO [Concomitant]
     Active Substance: PITAVASTATIN CALCIUM
     Indication: DYSLIPIDAEMIA
     Dosage: 1 MILLIGRAM, QD
     Route: 048
     Dates: start: 20190320, end: 20190327
  6. FEBURIC [Suspect]
     Active Substance: FEBUXOSTAT
     Indication: HYPERURICAEMIA
     Dosage: 20 MILLIGRAM, QD
     Route: 048
     Dates: start: 20190327, end: 20190327

REACTIONS (5)
  - Drug hypersensitivity [Recovered/Resolved]
  - Anaphylactic reaction [Recovered/Resolved]
  - Dizziness [Recovered/Resolved]
  - Feeling cold [Recovered/Resolved]
  - Vomiting [Recovered/Resolved]

NARRATIVE: CASE EVENT DATE: 20190327
